FAERS Safety Report 20877714 (Version 1)
Quarter: 2022Q2

REPORT INFORMATION
  Report Type: Spontaneous
  Country: US (occurrence: US)
  Receive Date: 20220526
  Receipt Date: 20220526
  Transmission Date: 20220720
  Serious: Yes (Life-Threatening, Hospitalization)
  Sender: FDA-Public Use
  Company Number: US-MYLANLABS-2022M1038873

PATIENT
  Age: 44 Year
  Sex: Male

DRUGS (5)
  1. EPINEPHRINE [Suspect]
     Active Substance: EPINEPHRINE
     Indication: Vasoplegia syndrome
     Dosage: UNK
     Route: 065
  2. CHLOROTHIAZIDE [Suspect]
     Active Substance: CHLOROTHIAZIDE
     Indication: Vasoplegia syndrome
     Dosage: UNK
     Route: 042
  3. MILRINONE [Suspect]
     Active Substance: MILRINONE
     Indication: Vasoplegia syndrome
     Dosage: THE PATIENT RECEIVED MILRINONE INFUSION
     Route: 065
  4. DOBUTAMINE [Suspect]
     Active Substance: DOBUTAMINE HYDROCHLORIDE
     Indication: Vasoplegia syndrome
     Dosage: UNK
     Route: 065
  5. BUMETANIDE [Suspect]
     Active Substance: BUMETANIDE
     Indication: Vasoplegia syndrome
     Dosage: UNK
     Route: 065

REACTIONS (2)
  - Drug ineffective [Unknown]
  - Off label use [Unknown]
